FAERS Safety Report 9013719 (Version 1)
Quarter: 2013Q1

REPORT INFORMATION
  Report Type: Spontaneous
  Country: US (occurrence: None)
  Receive Date: 20130108
  Receipt Date: 20130108
  Transmission Date: 20140127
  Serious: No
  Sender: FDA-Public Use
  Company Number: None

PATIENT
  Age: 7 Year
  Sex: Female
  Weight: 17.69 kg

DRUGS (1)
  1. GENOTROPIN MINIQUICK [Suspect]
     Dosage: 06. MG DAILY
     Dates: start: 20121001

REACTIONS (4)
  - Injection site reaction [None]
  - Injection site mass [None]
  - Blister [None]
  - Skin exfoliation [None]
